FAERS Safety Report 5512974-6 (Version None)
Quarter: 2007Q4

REPORT INFORMATION
  Report Type: 
  Country: None (occurrence: None)
  Receive Date: 20071112
  Receipt Date: 20071102
  Transmission Date: 20080405
  Serious: Yes (Hospitalization)
  Sender: FDA-Public Use
  Company Number: JP-AMGEN-US221916

PATIENT
  Sex: Female
  Weight: 59 kg

DRUGS (20)
  1. ENBREL [Suspect]
     Indication: RHEUMATOID ARTHRITIS
     Route: 058
     Dates: start: 20060202, end: 20060205
  2. ENBREL [Suspect]
     Route: 058
     Dates: start: 20060212, end: 20060816
  3. ENBREL [Suspect]
     Route: 058
     Dates: start: 20060901
  4. RHEUMATREX [Suspect]
     Indication: RHEUMATOID ARTHRITIS
     Dosage: UNKNOWN
     Route: 048
     Dates: start: 20031212, end: 20060816
  5. RHEUMATREX [Suspect]
     Dosage: UNKNOWN
     Route: 048
     Dates: start: 20060909
  6. ACINON [Concomitant]
     Indication: PROPHYLAXIS AGAINST GASTROINTESTINAL ULCER
     Route: 048
  7. CYTOTEC [Concomitant]
     Indication: PROPHYLAXIS AGAINST GASTROINTESTINAL ULCER
     Route: 048
  8. ATELEC [Concomitant]
     Route: 048
  9. MICARDIS [Concomitant]
     Indication: HYPERTENSION
     Route: 048
  10. HALCION [Concomitant]
     Indication: INSOMNIA
     Route: 048
  11. ALFAROL [Concomitant]
     Indication: OSTEOPOROSIS
     Route: 048
  12. DEPAS [Concomitant]
     Indication: NEUROSIS
     Route: 048
  13. IDOMETHINE [Concomitant]
     Indication: RHEUMATOID ARTHRITIS
     Dosage: UNKNOWN
     Route: 061
  14. MOBIC [Concomitant]
     Indication: RHEUMATOID ARTHRITIS
     Dosage: UNKNOWN
     Route: 048
  15. MILTAX [Concomitant]
     Indication: RHEUMATOID ARTHRITIS
     Dosage: UNKNOWN
     Route: 048
  16. IRSOGLADINE MALEATE [Concomitant]
     Dosage: UNKNOWN
     Route: 048
  17. EVISTA [Concomitant]
     Dosage: UNKNOWN
     Route: 048
  18. ISCOTIN [Concomitant]
     Indication: ANTIBIOTIC PROPHYLAXIS
     Route: 048
     Dates: start: 20060201
  19. PNEUMOVAX 23 [Concomitant]
     Dosage: UNKNOWN
     Route: 042
  20. SULFASALAZINE [Concomitant]
     Indication: RHEUMATOID ARTHRITIS
     Route: 048
     Dates: start: 20050707, end: 20060816

REACTIONS (1)
  - PNEUMOCYSTIS JIROVECI PNEUMONIA [None]
